FAERS Safety Report 23067016 (Version 1)
Quarter: 2023Q4

REPORT INFORMATION
  Report Type: Spontaneous
  Country: US (occurrence: US)
  Receive Date: 20231016
  Receipt Date: 20231016
  Transmission Date: 20240110
  Serious: No
  Sender: FDA-Public Use
  Company Number: US-JNJFOC-20231029215

PATIENT

DRUGS (2)
  1. XARELTO [Suspect]
     Active Substance: RIVAROXABAN
     Indication: Embolism venous
     Dosage: 15 MG IN THE MORNING AND 35 MG IN THE EVENING
     Route: 048
  2. XARELTO [Suspect]
     Active Substance: RIVAROXABAN
     Dosage: 15 MG IN THE MORNING AND 35 MG IN THE EVENING
     Route: 048

REACTIONS (1)
  - Inappropriate schedule of product administration [Unknown]
